FAERS Safety Report 16439650 (Version 1)
Quarter: 2019Q2

REPORT INFORMATION
  Report Type: Spontaneous
  Country: ES (occurrence: ES)
  Receive Date: 20190617
  Receipt Date: 20190617
  Transmission Date: 20190711
  Serious: Yes (Other)
  Sender: FDA-Public Use
  Company Number: ES-ELI_LILLY_AND_COMPANY-ES201906004279

PATIENT
  Age: 52 Year
  Sex: Male

DRUGS (5)
  1. PERMIXON [Concomitant]
     Active Substance: HERBALS\SAW PALMETTO
     Indication: PRODUCT USED FOR UNKNOWN INDICATION
  2. LEXATIN [BROMAZEPAM] [Concomitant]
     Active Substance: BROMAZEPAM
     Indication: PRODUCT USED FOR UNKNOWN INDICATION
  3. CIALIS [Suspect]
     Active Substance: TADALAFIL
     Indication: BENIGN PROSTATIC HYPERPLASIA
     Dosage: 10 MG, UNKNOWN
     Route: 065
     Dates: start: 2009
  4. ATORVASTATIN [Concomitant]
     Active Substance: ATORVASTATIN
     Indication: PRODUCT USED FOR UNKNOWN INDICATION
  5. ALQUEN [Concomitant]

REACTIONS (2)
  - Transitional cell carcinoma [Unknown]
  - Dyspepsia [Unknown]

NARRATIVE: CASE EVENT DATE: 2016
